FAERS Safety Report 5979999-8 (Version None)
Quarter: 2008Q4

REPORT INFORMATION
  Report Type: 
  Country: None (occurrence: None)
  Receive Date: 20081205
  Receipt Date: 20081204
  Transmission Date: 20090506
  Serious: Yes (Other)
  Sender: FDA-Public Use
  Company Number: US-BAYER-200832553NA

PATIENT
  Age: 36 Year
  Sex: Female
  Weight: 80 kg

DRUGS (1)
  1. MIRENA [Suspect]
     Indication: CONTRACEPTION
     Route: 015
     Dates: start: 20070901

REACTIONS (3)
  - AMNESIA [None]
  - HYPOMENORRHOEA [None]
  - VAGINAL HAEMORRHAGE [None]
